FAERS Safety Report 5755519-8 (Version None)
Quarter: 2008Q2

REPORT INFORMATION
  Report Type: 
  Country: None (occurrence: None)
  Receive Date: 20080530
  Receipt Date: 20080530
  Transmission Date: 20081010
  Serious: Yes (Life-Threatening, Hospitalization, Other)
  Sender: FDA-Public Use
  Company Number: None

PATIENT
  Age: 44 Year
  Sex: Male
  Weight: 190.5108 kg

DRUGS (1)
  1. ABILIFY [Suspect]
     Indication: PANIC DISORDER
     Dosage: 10 MG 1 X A DAY PO
     Route: 048
     Dates: start: 20080522, end: 20080526

REACTIONS (8)
  - DEHYDRATION [None]
  - DISORIENTATION [None]
  - HEADACHE [None]
  - MOVEMENT DISORDER [None]
  - PANCREATIC DISORDER [None]
  - THIRST [None]
  - TYPE 2 DIABETES MELLITUS [None]
  - VISION BLURRED [None]
